FAERS Safety Report 19169985 (Version 2)
Quarter: 2021Q2

REPORT INFORMATION
  Report Type: Spontaneous
  Country: US (occurrence: US)
  Receive Date: 20210422
  Receipt Date: 20210527
  Transmission Date: 20210717
  Serious: Yes (Death, Other)
  Sender: FDA-Public Use
  Company Number: US-VERO BIOTECH-2109645

PATIENT
  Age: 48 Year
  Sex: Female

DRUGS (1)
  1. GENOSYL [Suspect]
     Active Substance: NITRIC OXIDE
     Indication: COVID-19
     Route: 055
     Dates: start: 20210405, end: 20210406

REACTIONS (2)
  - Acute respiratory distress syndrome [Unknown]
  - COVID-19 [Fatal]

NARRATIVE: CASE EVENT DATE: 20210406
